FAERS Safety Report 12083598 (Version 1)
Quarter: 2016Q1

REPORT INFORMATION
  Report Type: Other
  Country: US (occurrence: US)
  Receive Date: 20160217
  Receipt Date: 20160217
  Transmission Date: 20160526
  Serious: No
  Sender: FDA-Public Use
  Company Number: US-MYLANLABS-2015M1035081

PATIENT
  Age: 3 Year
  Sex: Male
  Weight: 15 kg

DRUGS (1)
  1. EPIPEN JR [Suspect]
     Active Substance: EPINEPHRINE
     Indication: ANAPHYLACTIC REACTION
     Dosage: UNK
     Dates: start: 2014, end: 2014

REACTIONS (2)
  - Injection site scar [Not Recovered/Not Resolved]
  - Injection site laceration [Recovering/Resolving]

NARRATIVE: CASE EVENT DATE: 2014
